FAERS Safety Report 25792547 (Version 1)
Quarter: 2025Q3

REPORT INFORMATION
  Report Type: Report from Study
  Country: US (occurrence: US)
  Receive Date: 20250911
  Receipt Date: 20250911
  Transmission Date: 20251020
  Serious: Yes (Hospitalization, Other)
  Sender: TAKEDA
  Company Number: US-TAKEDA-2025TUS047726

PATIENT
  Sex: Female

DRUGS (3)
  1. LANADELUMAB [Suspect]
     Active Substance: LANADELUMAB
     Indication: Immune system disorder
     Dosage: 300 MILLIGRAM, Q2WEEKS
     Dates: start: 202503
  2. LANADELUMAB [Suspect]
     Active Substance: LANADELUMAB
     Indication: Prophylaxis
  3. LANADELUMAB [Suspect]
     Active Substance: LANADELUMAB

REACTIONS (5)
  - Chest pain [Unknown]
  - Cholangitis [Unknown]
  - Bronchitis [Unknown]
  - Weight increased [Unknown]
  - Injection site pain [Unknown]
